FAERS Safety Report 9652662 (Version 2)
Quarter: 2013Q4

REPORT INFORMATION
  Report Type: Report from Study
  Country: US (occurrence: US)
  Receive Date: 20131029
  Receipt Date: 20131108
  Transmission Date: 20140711
  Serious: Yes (Other)
  Sender: FDA-Public Use
  Company Number: US-ABBVIE-13P-163-1162683-00

PATIENT
  Age: 35 Year
  Sex: Female
  Weight: 63.56 kg

DRUGS (7)
  1. HUMIRA [Suspect]
     Indication: CROHN^S DISEASE
     Dates: start: 20111019
  2. HUMIRA [Suspect]
     Dates: start: 201203
  3. HUMIRA [Suspect]
  4. PROZAC [Concomitant]
     Indication: DEPRESSION
     Dosage: 40 MG DAILY
  5. PROZAC [Concomitant]
     Indication: ANXIETY
  6. IMURAN [Concomitant]
     Indication: CROHN^S DISEASE
  7. IMURAN [Concomitant]
     Dosage: 175 MG DAILY

REACTIONS (8)
  - Abortion spontaneous [Unknown]
  - Perirectal abscess [Recovered/Resolved]
  - Anal abscess [Unknown]
  - Erythema [Unknown]
  - Dry skin [Unknown]
  - Crohn^s disease [Unknown]
  - Constipation [Unknown]
  - Haematochezia [Unknown]
